FAERS Safety Report 11702405 (Version 1)
Quarter: 2015Q4

REPORT INFORMATION
  Report Type: Spontaneous
  Country: US (occurrence: US)
  Receive Date: 20151105
  Receipt Date: 20151105
  Transmission Date: 20160304
  Serious: No
  Sender: FDA-Public Use
  Company Number: US-APOPHARMA USA, INC.-2012AP002363

PATIENT
  Age: 81 Year
  Sex: Female
  Weight: 54.4 kg

DRUGS (1)
  1. FERRIPROX [Suspect]
     Active Substance: DEFERIPRONE
     Indication: SUPERFICIAL SIDEROSIS OF CENTRAL NERVOUS SYSTEM
     Route: 048
     Dates: start: 20120712

REACTIONS (1)
  - Constipation [Recovering/Resolving]

NARRATIVE: CASE EVENT DATE: 20120801
